FAERS Safety Report 4398279-8 (Version None)
Quarter: 2004Q3

REPORT INFORMATION
  Report Type: 
  Country: None (occurrence: None)
  Receive Date: 20040712
  Receipt Date: 20040629
  Transmission Date: 20050211
  Serious: Yes (Hospitalization)
  Sender: FDA-Public Use
  Company Number: 04H-114-0265629-00

PATIENT

DRUGS (2)
  1. LEUCOVORIN CALCIUM [Suspect]
     Indication: CHEMOTHERAPY
     Dosage: 20 MG/M2,ON DAYS 1-5, EVERY 4 WEEKS, INTRAVENOUS BOLUS
     Route: 040
  2. FLUOROURACIL [Suspect]
     Indication: CHEMOTHERAPY
     Dosage: 425 MG/M2,ON DAYS 1-5, EVERY 4 WEEKS, INTRAVENOUS BOLUS
     Route: 040

REACTIONS (1)
  - NEUTROPENIA [None]
